FAERS Safety Report 20968729 (Version 5)
Quarter: 2022Q4

REPORT INFORMATION
  Report Type: Spontaneous
  Country: US (occurrence: None)
  Receive Date: 20220616
  Receipt Date: 20221109
  Transmission Date: 20230113
  Serious: Yes (Other)
  Sender: FDA-Public Use
  Company Number: 2022A217198

PATIENT
  Age: 22299 Day
  Sex: Female
  Weight: 98 kg

DRUGS (82)
  1. OMEPRAZOLE [Suspect]
     Active Substance: OMEPRAZOLE
     Indication: Gastrooesophageal reflux disease
     Dosage: GENERIC
     Route: 065
     Dates: start: 200708
  2. OMEPRAZOLE [Suspect]
     Active Substance: OMEPRAZOLE
     Indication: Gastrooesophageal reflux disease
     Dosage: GENERIC
     Route: 065
     Dates: start: 200803
  3. OMEPRAZOLE [Suspect]
     Active Substance: OMEPRAZOLE
     Indication: Gastrooesophageal reflux disease
     Dosage: GENERIC
     Route: 065
  4. PREVACID [Suspect]
     Active Substance: LANSOPRAZOLE
     Indication: Gastrooesophageal reflux disease
     Route: 065
     Dates: start: 200701
  5. PREVACID [Suspect]
     Active Substance: LANSOPRAZOLE
     Indication: Gastrooesophageal reflux disease
     Route: 065
     Dates: start: 200702
  6. PREVACID [Suspect]
     Active Substance: LANSOPRAZOLE
     Indication: Gastrooesophageal reflux disease
     Route: 065
     Dates: start: 200706
  7. PREVACID [Suspect]
     Active Substance: LANSOPRAZOLE
     Indication: Gastrooesophageal reflux disease
     Route: 065
     Dates: start: 200709
  8. PREVACID [Suspect]
     Active Substance: LANSOPRAZOLE
     Indication: Gastrooesophageal reflux disease
     Route: 065
     Dates: start: 200803
  9. PREVACID [Suspect]
     Active Substance: LANSOPRAZOLE
     Indication: Gastrooesophageal reflux disease
     Route: 065
     Dates: start: 200804
  10. PREVACID [Suspect]
     Active Substance: LANSOPRAZOLE
     Indication: Gastrooesophageal reflux disease
     Route: 065
     Dates: start: 200808
  11. PREVACID [Suspect]
     Active Substance: LANSOPRAZOLE
     Indication: Gastrooesophageal reflux disease
     Route: 065
     Dates: start: 200903
  12. PREVACID [Suspect]
     Active Substance: LANSOPRAZOLE
     Indication: Gastrooesophageal reflux disease
     Route: 065
     Dates: start: 200904, end: 200910
  13. PREVACID [Suspect]
     Active Substance: LANSOPRAZOLE
     Indication: Gastrooesophageal reflux disease
     Dosage: GENERIC
     Route: 065
     Dates: start: 201010, end: 201106
  14. PREVACID [Suspect]
     Active Substance: LANSOPRAZOLE
     Indication: Gastrooesophageal reflux disease
     Dosage: GENERIC
     Route: 065
     Dates: start: 201108, end: 201111
  15. PREVACID [Suspect]
     Active Substance: LANSOPRAZOLE
     Indication: Gastrooesophageal reflux disease
     Dosage: GENERIC
     Route: 065
     Dates: start: 201409, end: 201501
  16. PREVACID [Suspect]
     Active Substance: LANSOPRAZOLE
     Indication: Gastrooesophageal reflux disease
     Dosage: GENERIC
     Route: 065
     Dates: start: 201503, end: 201510
  17. PREVACID [Suspect]
     Active Substance: LANSOPRAZOLE
     Indication: Gastrooesophageal reflux disease
     Dosage: GENERIC
     Route: 065
     Dates: start: 201611, end: 201709
  18. PREVACID [Suspect]
     Active Substance: LANSOPRAZOLE
     Indication: Gastrooesophageal reflux disease
     Dosage: GENERIC
     Route: 065
     Dates: start: 20210113
  19. PANTOPRAZOLE [Suspect]
     Active Substance: PANTOPRAZOLE
     Indication: Gastrooesophageal reflux disease
     Dosage: GENERIC
     Route: 065
  20. PANTOPRAZOLE [Suspect]
     Active Substance: PANTOPRAZOLE
     Indication: Gastrooesophageal reflux disease
     Dosage: GENERIC
     Route: 065
     Dates: start: 201605, end: 201701
  21. SEVELAMER [Concomitant]
     Active Substance: SEVELAMER
     Indication: Renal disorder
     Route: 065
     Dates: start: 2017
  22. CALTROL [Concomitant]
     Indication: Renal disorder
     Route: 065
     Dates: start: 2017
  23. NIFEDIPINE [Concomitant]
     Active Substance: NIFEDIPINE
     Indication: Blood pressure abnormal
     Route: 065
     Dates: start: 2015
  24. ALLOPURINOL [Concomitant]
     Active Substance: ALLOPURINOL
     Indication: Renal disorder
     Route: 065
     Dates: start: 2017
  25. CARVEDILOL [Concomitant]
     Active Substance: CARVEDILOL
     Indication: Cardiac discomfort
     Route: 065
     Dates: start: 2016
  26. NASONEX [Concomitant]
     Active Substance: MOMETASONE FUROATE
     Indication: Hypersensitivity
     Route: 065
     Dates: start: 2016
  27. CLONIDINE [Concomitant]
     Active Substance: CLONIDINE
     Indication: Blood pressure abnormal
     Route: 065
     Dates: start: 2016
  28. SIMVASTATIN [Concomitant]
     Active Substance: SIMVASTATIN
     Indication: Blood cholesterol abnormal
     Route: 065
     Dates: start: 2015
  29. TIZANIDINE [Concomitant]
     Active Substance: TIZANIDINE
     Indication: Pain
     Route: 065
     Dates: start: 2015, end: 2017
  30. HYDROCODONE [Concomitant]
     Active Substance: HYDROCODONE
     Indication: Pain
     Route: 065
     Dates: start: 2007, end: 2017
  31. LISINOPRIL [Concomitant]
     Active Substance: LISINOPRIL
     Indication: Blood pressure abnormal
     Route: 065
     Dates: start: 2016, end: 2017
  32. METOPROLOL [Concomitant]
     Active Substance: METOPROLOL
     Indication: Blood pressure abnormal
     Route: 065
     Dates: start: 2007, end: 2009
  33. TEMAZEPAM [Concomitant]
     Active Substance: TEMAZEPAM
     Indication: Insomnia
     Route: 065
     Dates: start: 2007, end: 2016
  34. AMLODIPINE [Concomitant]
     Active Substance: AMLODIPINE BESYLATE
     Indication: Blood pressure abnormal
     Route: 065
     Dates: start: 2007, end: 2012
  35. AMITRIPTYLINE [Concomitant]
     Active Substance: AMITRIPTYLINE
     Indication: Depression
     Route: 065
     Dates: start: 2008, end: 2009
  36. CICLOPIROX [Concomitant]
     Active Substance: CICLOPIROX
  37. DICLOFENAC [Concomitant]
     Active Substance: DICLOFENAC
  38. LACTULOSE [Concomitant]
     Active Substance: LACTULOSE
  39. CYANOCOBALAMIN/FOLIC ACID/IRON [Concomitant]
  40. CEPHALEXIN [Concomitant]
     Active Substance: CEPHALEXIN
  41. MUPIROCIN [Concomitant]
     Active Substance: MUPIROCIN
  42. HYDROCORTISONE [Concomitant]
     Active Substance: HYDROCORTISONE
  43. MELOXICAM [Concomitant]
     Active Substance: MELOXICAM
  44. MICONAZOLE [Concomitant]
     Active Substance: MICONAZOLE
  45. CIPROFLOXACIN [Concomitant]
     Active Substance: CIPROFLOXACIN
  46. LASIX [Concomitant]
     Active Substance: FUROSEMIDE
  47. WELLBUTRIN [Concomitant]
     Active Substance: BUPROPION HYDROCHLORIDE
  48. LIPITOR [Concomitant]
     Active Substance: ATORVASTATIN CALCIUM
  49. DARVOCET [Concomitant]
     Active Substance: ACETAMINOPHEN\PROPOXYPHENE HYDROCHLORIDE
  50. WIXELA INHUB [Concomitant]
     Active Substance: FLUTICASONE PROPIONATE\SALMETEROL XINAFOATE
  51. CYANOCOBALAMIN [Concomitant]
     Active Substance: CYANOCOBALAMIN
  52. ACETAMINOPHEN\HYDROCODONE BITARTRATE [Concomitant]
     Active Substance: ACETAMINOPHEN\HYDROCODONE BITARTRATE
  53. SORBITOL [Concomitant]
     Active Substance: SORBITOL
  54. AMMONIUM LACTATE [Concomitant]
     Active Substance: AMMONIUM LACTATE
  55. ATROVENT [Concomitant]
     Active Substance: IPRATROPIUM BROMIDE
  56. BUMEX [Concomitant]
     Active Substance: BUMETANIDE
  57. COLACE [Concomitant]
     Active Substance: DOCUSATE SODIUM
  58. FOLIC ACID [Concomitant]
     Active Substance: FOLIC ACID
  59. FERROUS SULFATE [Concomitant]
     Active Substance: FERROUS SULFATE
  60. RESTORIL [Concomitant]
     Active Substance: TEMAZEPAM
  61. ATROPINE [Concomitant]
     Active Substance: ATROPINE
  62. HYDROMORPHONE [Concomitant]
     Active Substance: HYDROMORPHONE
  63. OXYCODONE [Concomitant]
     Active Substance: OXYCODONE
  64. EPHEDRINE [Concomitant]
     Active Substance: EPHEDRINE
  65. MECLIZINE [Concomitant]
     Active Substance: MECLIZINE HYDROCHLORIDE
  66. DIALYVITE SUPREM [Concomitant]
  67. ERYTHROMYCIN [Concomitant]
     Active Substance: ERYTHROMYCIN
  68. VOLTAREN [Concomitant]
     Active Substance: DICLOFENAC SODIUM
  69. NEOMYCIN/BENZOCAINE/FLUOCINOLONE ACETONIDE/RUSCOGENIN [Concomitant]
  70. RANOLAZINE [Concomitant]
     Active Substance: RANOLAZINE
  71. TERBINAFINE [Concomitant]
     Active Substance: TERBINAFINE
  72. AMBIEN [Concomitant]
     Active Substance: ZOLPIDEM TARTRATE
  73. ARANESP [Concomitant]
     Active Substance: DARBEPOETIN ALFA
  74. FISH OIL [Concomitant]
     Active Substance: FISH OIL
  75. FLEXERIL [Concomitant]
     Active Substance: CYCLOBENZAPRINE HYDROCHLORIDE
  76. JANUVIA [Concomitant]
     Active Substance: SITAGLIPTIN PHOSPHATE
  77. LOSARTAN [Concomitant]
     Active Substance: LOSARTAN
  78. NORVASC [Concomitant]
     Active Substance: AMLODIPINE BESYLATE
  79. TENEX [Concomitant]
     Active Substance: GUANFACINE HYDROCHLORIDE
  80. ULTRAM [Concomitant]
     Active Substance: TRAMADOL HYDROCHLORIDE
  81. VITAMIN E [Concomitant]
     Active Substance: .ALPHA.-TOCOPHEROL
  82. ROBAXIN [Concomitant]
     Active Substance: METHOCARBAMOL

REACTIONS (7)
  - Acute kidney injury [Unknown]
  - Chronic kidney disease [Not Recovered/Not Resolved]
  - Renal failure [Unknown]
  - End stage renal disease [Unknown]
  - Nephrogenic anaemia [Unknown]
  - Hyperparathyroidism secondary [Unknown]
  - Chronic kidney disease-mineral and bone disorder [Unknown]

NARRATIVE: CASE EVENT DATE: 20130923
